FAERS Safety Report 4705930-9 (Version None)
Quarter: 2005Q2

REPORT INFORMATION
  Report Type: 
  Country: None (occurrence: None)
  Receive Date: 20050629
  Receipt Date: 20050607
  Transmission Date: 20051028
  Serious: Yes (Hospitalization)
  Sender: FDA-Public Use
  Company Number: 11432

PATIENT
  Age: 65 Year
  Sex: Female
  Weight: 65 kg

DRUGS (4)
  1. CYTARABINE [Suspect]
     Indication: ACUTE MYELOID LEUKAEMIA
     Dosage: 100 MG/M2 OTH IV
     Route: 042
     Dates: start: 20050107
  2. DAUNORUBICIN HCL [Suspect]
     Indication: ACUTE MYELOID LEUKAEMIA
     Dosage: 45 MG/M2 OTH IV
     Route: 042
     Dates: start: 20050107
  3. PLACEBO [Suspect]
     Indication: ACUTE MYELOID LEUKAEMIA
     Dosage: 550 MG OTH IV
     Route: 042
     Dates: start: 20050107
  4. G-CSF [Concomitant]

REACTIONS (7)
  - GASTROINTESTINAL HAEMORRHAGE [None]
  - HAEMOGLOBIN DECREASED [None]
  - NEUTROPENIA [None]
  - PROCTALGIA [None]
  - TACHYCARDIA [None]
  - THROMBOCYTOPENIA [None]
  - WHITE BLOOD CELL COUNT DECREASED [None]
